FAERS Safety Report 12728782 (Version 3)
Quarter: 2017Q1

REPORT INFORMATION
  Report Type: Spontaneous
  Country: US (occurrence: US)
  Receive Date: 20160909
  Receipt Date: 20170104
  Transmission Date: 20170428
  Serious: No
  Sender: FDA-Public Use
  Company Number: US-PFIZER INC-2016424444

PATIENT
  Age: 60 Year
  Sex: Female
  Weight: 61 kg

DRUGS (6)
  1. COENZYME Q10 [Concomitant]
     Active Substance: UBIDECARENONE
     Indication: CARDIAC DISORDER
     Dosage: 100 MG, 1X/DAY
  2. ASPIRIN. [Concomitant]
     Active Substance: ASPIRIN
     Indication: ANTICOAGULANT THERAPY
     Dosage: 81 MG, AS NEEDED
     Dates: start: 1993
  3. FISH OIL [Concomitant]
     Active Substance: FISH OIL
     Indication: ANTICOAGULANT THERAPY
     Dosage: UNK, 1X/DAY
  4. NORVASC [Suspect]
     Active Substance: AMLODIPINE BESYLATE
     Indication: BLOOD PRESSURE ABNORMAL
     Dosage: 5 MG, 1X/DAY
     Route: 048
  5. VITAMIN D3 [Concomitant]
     Active Substance: CHOLECALCIFEROL
     Dosage: 5000 IU, 1X/DAY
  6. MAGNESIUM [Concomitant]
     Active Substance: MAGNESIUM
     Dosage: 400 MG, UNK

REACTIONS (10)
  - Heart rate abnormal [Not Recovered/Not Resolved]
  - Musculoskeletal stiffness [Unknown]
  - Dry eye [Unknown]
  - Pain [Unknown]
  - Hypoaesthesia [Recovering/Resolving]
  - Vision blurred [Unknown]
  - Limb discomfort [Not Recovered/Not Resolved]
  - Chest discomfort [Recovering/Resolving]
  - Feeling abnormal [Not Recovered/Not Resolved]
  - Cough [Unknown]

NARRATIVE: CASE EVENT DATE: 1993
